FAERS Safety Report 6690465-7 (Version None)
Quarter: 2010Q2

REPORT INFORMATION
  Report Type: 
  Country: None (occurrence: None)
  Receive Date: 20100421
  Receipt Date: 20100420
  Transmission Date: 20101027
  Serious: Yes (Other)
  Sender: FDA-Public Use
  Company Number: US-ELI_LILLY_AND_COMPANY-US201004005253

PATIENT
  Sex: Male

DRUGS (3)
  1. HUMALOG [Suspect]
     Indication: DIABETES MELLITUS
     Dosage: 30 U, OTHER
     Dates: start: 20091001
  2. LEVEMIR [Concomitant]
     Dosage: 96 U, EACH EVENING
     Dates: start: 20090101
  3. JANUVIA [Concomitant]
     Dosage: 50 MG, DAILY (1/D)
     Dates: start: 20080101

REACTIONS (3)
  - BLOOD GLUCOSE INCREASED [None]
  - INJECTION SITE INJURY [None]
  - RENAL FAILURE CHRONIC [None]
